FAERS Safety Report 24897101 (Version 1)
Quarter: 2025Q1

REPORT INFORMATION
  Report Type: Spontaneous
  Country: US (occurrence: US)
  Receive Date: 20250128
  Receipt Date: 20250128
  Transmission Date: 20250409
  Serious: Yes (Other)
  Sender: BRISTOL-MYERS SQUIBB COMPANY
  Company Number: US-BRISTOL-MYERS SQUIBB COMPANY-2025-010012

PATIENT
  Age: 79 Year
  Sex: Male

DRUGS (1)
  1. REVLIMID [Suspect]
     Active Substance: LENALIDOMIDE
     Indication: Burkitt^s lymphoma
     Dosage: FREQUENCY: DAILY FOR 21 DAYS ON, 7 DAYS OFF
     Route: 048

REACTIONS (2)
  - Metastases to central nervous system [Unknown]
  - Off label use [Unknown]
